FAERS Safety Report 6439830-3 (Version None)
Quarter: 2009Q4

REPORT INFORMATION
  Report Type: 
  Country: None (occurrence: None)
  Receive Date: 20091112
  Receipt Date: 20091112
  Transmission Date: 20100525
  Serious: Yes (Hospitalization)
  Sender: FDA-Public Use
  Company Number: None

PATIENT
  Age: 22 Year
  Sex: Female
  Weight: 62 kg

DRUGS (3)
  1. MINOCYCLINE HCL [Suspect]
     Indication: CONFLUENT AND RETICULATE PAPILLOMATOSIS
     Dosage: 100 MG DAILY PO
     Route: 048
     Dates: start: 20090612, end: 20090716
  2. THYROID SOOTHE LIQUID [Concomitant]
  3. SEROQUEL [Concomitant]

REACTIONS (4)
  - DRUG RASH WITH EOSINOPHILIA AND SYSTEMIC SYMPTOMS [None]
  - LIVER INJURY [None]
  - LYMPHADENOPATHY [None]
  - RENAL INJURY [None]
